FAERS Safety Report 5748723-6 (Version None)
Quarter: 2008Q2

REPORT INFORMATION
  Report Type: 
  Country: None (occurrence: None)
  Receive Date: 20080521
  Receipt Date: 20080506
  Transmission Date: 20081010
  Serious: Yes (Hospitalization)
  Sender: FDA-Public Use
  Company Number: S08-FRA-01717-01

PATIENT
  Age: 57 Year
  Sex: Male

DRUGS (4)
  1. AOTAL (ACAMPROSATE) [Suspect]
     Indication: ALCOHOL ABUSE
     Dosage: 6 QD PO
     Route: 048
     Dates: start: 20080414, end: 20080101
  2. REVIA [Concomitant]
  3. LEXOMIL (BROMAZEPAM) [Concomitant]
  4. DI-ANTALVIC [Concomitant]

REACTIONS (1)
  - SKIN DISORDER [None]
